FAERS Safety Report 8348099-4 (Version None)
Quarter: 2012Q2

REPORT INFORMATION
  Report Type: 
  Country: None (occurrence: None)
  Receive Date: 20120509
  Receipt Date: 20120501
  Transmission Date: 20120825
  Serious: Yes (Disabling, Other)
  Sender: FDA-Public Use
  Company Number: US-BAYER-200933545NA

PATIENT
  Age: 42 Year
  Sex: Male
  Weight: 44.444 kg

DRUGS (16)
  1. NEXAVAR [Interacting]
     Route: 048
     Dates: start: 20091001, end: 20091101
  2. NEXAVAR [Interacting]
     Dosage: 200 MG, BID
     Dates: start: 20110101, end: 20110101
  3. NEXAVAR [Interacting]
     Dosage: 200 MG, BID
     Route: 048
     Dates: start: 20101206
  4. CHEMOTHERAPEUTICS NOS [Interacting]
     Indication: HEPATIC NEOPLASM MALIGNANT
  5. VIREAD [Concomitant]
     Indication: HIV INFECTION
     Dosage: 300 MG, QD
     Route: 048
  6. NEXAVAR [Interacting]
     Dosage: 200 MG, BID
     Route: 048
  7. NEXAVAR [Interacting]
     Dosage: 200 MG, DAILY 2 WEEKS ON, 1 WEEK OFF
     Route: 048
  8. NEXAVAR [Interacting]
     Dosage: 1 PILL DAILY
  9. EPZICOM [Concomitant]
     Indication: HIV INFECTION
     Dosage: 1 DF, QD
     Route: 048
  10. NEXAVAR [Suspect]
     Indication: HEPATIC NEOPLASM MALIGNANT
     Dosage: 400 MG, BID
     Route: 048
     Dates: start: 20090918, end: 20091015
  11. NEXAVAR [Interacting]
     Dosage: 100 MG, QD
     Dates: start: 20110101, end: 20110201
  12. NORVIR [Concomitant]
     Indication: HIV INFECTION
     Dosage: 100 MG, QD
     Route: 048
  13. RED BLOOD CELLS [Concomitant]
     Dosage: 1 U, TRANSFUSED
     Dates: start: 20100927
  14. NEXAVAR [Interacting]
     Dosage: 200 MG, BID
     Route: 048
     Dates: start: 20091101
  15. NEXAVAR [Interacting]
     Dosage: 200 MG, QOD
  16. REYATAZ [Concomitant]
     Indication: HIV INFECTION
     Dosage: 300 MG, QD
     Route: 048

REACTIONS (18)
  - DRY SKIN [None]
  - HAEMATOCHEZIA [None]
  - ERYTHEMA [None]
  - FATIGUE [None]
  - DERMATITIS BULLOUS [None]
  - HEPATIC NEOPLASM [None]
  - MOBILITY DECREASED [None]
  - JOINT STIFFNESS [None]
  - SKIN DISORDER [None]
  - SKIN FISSURES [None]
  - SKIN HAEMORRHAGE [None]
  - BURNING SENSATION [None]
  - VOMITING [None]
  - DYSPEPSIA [None]
  - JAUNDICE [None]
  - THERMAL BURN [None]
  - SKIN REACTION [None]
  - BLISTER [None]
